FAERS Safety Report 8062974-X (Version None)
Quarter: 2012Q1

REPORT INFORMATION
  Report Type: 
  Country: None (occurrence: None)
  Receive Date: 20120123
  Receipt Date: 20120117
  Transmission Date: 20120608
  Serious: Yes (Hospitalization)
  Sender: FDA-Public Use
  Company Number: GB-ROCHE-1031299

PATIENT
  Sex: Female
  Weight: 78 kg

DRUGS (8)
  1. ACTAL [Concomitant]
  2. BISOPROLOL [Concomitant]
  3. FUROSEMIDE [Concomitant]
  4. STEROIDS - UNKNOWN TYPE [Concomitant]
  5. MABTHERA [Suspect]
     Indication: RHEUMATOID ARTHRITIS
     Dates: start: 20101217
  6. LEFLUNOMIDE [Concomitant]
     Dates: end: 20110518
  7. PREDNISOLONE [Concomitant]
  8. OMEPRAZOLE [Concomitant]

REACTIONS (2)
  - URINARY TRACT INFECTION [None]
  - FALL [None]
